FAERS Safety Report 20297379 (Version 3)
Quarter: 2023Q4

REPORT INFORMATION
  Report Type: Spontaneous
  Country: US (occurrence: None)
  Receive Date: 20220105
  Receipt Date: 20231219
  Transmission Date: 20240110
  Serious: No
  Sender: FDA-Public Use
  Company Number: US-ROCHE-2900889

PATIENT
  Age: 46 Year
  Sex: Male

DRUGS (8)
  1. HEMLIBRA [Suspect]
     Active Substance: EMICIZUMAB-KXWH
     Indication: Factor VIII deficiency
     Route: 058
     Dates: start: 202012
  2. HEMLIBRA [Suspect]
     Active Substance: EMICIZUMAB-KXWH
     Indication: Factor VIII deficiency
     Dosage: STRENGTH : 105MG/0.7ML  HEMLIBRA TOTAL DOSE OR AMOUNT = 213MG.
     Route: 058
     Dates: start: 202012
  3. HEMLIBRA [Suspect]
     Active Substance: EMICIZUMAB-KXWH
     Dosage: STRENGTH : 60MG/0.4ML
     Route: 058
     Dates: start: 202012
  4. HEMLIBRA [Suspect]
     Active Substance: EMICIZUMAB-KXWH
     Dosage: (1.4ML), CURRENT, STRENGTH 105 MG/ 0.7ML
     Route: 058
     Dates: start: 202012
  5. HEMLIBRA [Suspect]
     Active Substance: EMICIZUMAB-KXWH
     Dosage: STRENGTH 105 MG/0.7ML ?CURRENT
     Route: 058
     Dates: start: 202012
  6. HEMLIBRA [Suspect]
     Active Substance: EMICIZUMAB-KXWH
     Dosage: FORM STRENGTH 105MG/0.7ML
     Route: 058
     Dates: start: 20201110
  7. HEMLIBRA [Suspect]
     Active Substance: EMICIZUMAB-KXWH
     Dosage: STRENGTH : 105MG/0.7ML
     Route: 058
     Dates: start: 202012
  8. HEMLIBRA [Suspect]
     Active Substance: EMICIZUMAB-KXWH
     Dosage: STRENGTH : 60MG/0.4ML
     Route: 058
     Dates: start: 202012

REACTIONS (1)
  - Haemorrhage [Unknown]

NARRATIVE: CASE EVENT DATE: 20220101
